FAERS Safety Report 23579111 (Version 2)
Quarter: 2024Q1

REPORT INFORMATION
  Report Type: Spontaneous
  Country: US (occurrence: US)
  Receive Date: 20240229
  Receipt Date: 20240318
  Transmission Date: 20240410
  Serious: No
  Sender: FDA-Public Use
  Company Number: US-ELI_LILLY_AND_COMPANY-US202402016793

PATIENT
  Age: 39 Year
  Sex: Female

DRUGS (9)
  1. MOUNJARO [Suspect]
     Active Substance: TIRZEPATIDE
     Indication: Weight control
     Dosage: UNK UNK, UNKNOWN
     Route: 058
     Dates: start: 202301
  2. MOUNJARO [Suspect]
     Active Substance: TIRZEPATIDE
     Indication: Weight control
     Dosage: 5 MG, OTHER (EVERY OTHER WEEKS)
     Route: 058
     Dates: start: 202308
  3. MOUNJARO [Suspect]
     Active Substance: TIRZEPATIDE
     Indication: Weight control
     Dosage: 5 MG, OTHER (EVERY OTHER WEEKS)
     Route: 058
     Dates: start: 202308
  4. MOUNJARO [Suspect]
     Active Substance: TIRZEPATIDE
     Indication: Weight control
     Dosage: 5 MG, OTHER (EVERY OTHER WEEKS)
     Route: 058
     Dates: start: 202308
  5. MOUNJARO [Suspect]
     Active Substance: TIRZEPATIDE
     Indication: Weight control
     Dosage: 5 MG, OTHER (EVERY OTHER WEEKS)
     Route: 058
     Dates: start: 202308
  6. MOUNJARO [Suspect]
     Active Substance: TIRZEPATIDE
     Dosage: 5 MG, OTHER (EVERY OTHER WEEKS)
     Route: 058
     Dates: start: 20240207
  7. MOUNJARO [Suspect]
     Active Substance: TIRZEPATIDE
     Dosage: 5 MG, OTHER (EVERY OTHER WEEKS)
     Route: 058
     Dates: start: 20240207
  8. MOUNJARO [Suspect]
     Active Substance: TIRZEPATIDE
     Dosage: 5 MG, OTHER (EVERY OTHER WEEKS)
     Route: 058
     Dates: start: 20240207
  9. MOUNJARO [Suspect]
     Active Substance: TIRZEPATIDE
     Dosage: 5 MG, OTHER (EVERY OTHER WEEKS)
     Route: 058
     Dates: start: 20240207

REACTIONS (7)
  - Off label use [Unknown]
  - Influenza like illness [Recovered/Resolved]
  - Food poisoning [Unknown]
  - Asthenia [Recovered/Resolved]
  - Fatigue [Recovered/Resolved]
  - Vomiting [Recovered/Resolved]
  - Nausea [Recovered/Resolved]

NARRATIVE: CASE EVENT DATE: 20230101
